FAERS Safety Report 6436455-0 (Version None)
Quarter: 2009Q4

REPORT INFORMATION
  Report Type: 
  Country: None (occurrence: None)
  Receive Date: 20091111
  Receipt Date: 20091101
  Transmission Date: 20100525
  Serious: Yes (Hospitalization)
  Sender: FDA-Public Use
  Company Number: ES-CELGENEUS-144-21880-09091285

PATIENT
  Sex: Female

DRUGS (3)
  1. REVLIMID [Suspect]
     Indication: MULTIPLE MYELOMA
     Route: 048
     Dates: start: 20090101, end: 20090101
  2. REVLIMID [Suspect]
     Route: 048
     Dates: start: 20090101, end: 20090101
  3. REVLIMID [Suspect]
     Route: 048
     Dates: start: 20090101, end: 20090901

REACTIONS (1)
  - TOXIC ENCEPHALOPATHY [None]
